FAERS Safety Report 6906146-8 (Version None)
Quarter: 2010Q3

REPORT INFORMATION
  Report Type: 
  Country: None (occurrence: None)
  Receive Date: 20100803
  Receipt Date: 20100803
  Transmission Date: 20110219
  Serious: Yes (Life-Threatening)
  Sender: FDA-Public Use
  Company Number: None

PATIENT
  Age: 65 Year
  Sex: Female
  Weight: 80.7403 kg

DRUGS (1)
  1. VICTOZA [Suspect]
     Indication: TYPE 2 DIABETES MELLITUS
     Dosage: 0.6MG 1X DAILY AT NIGHT SQ
     Route: 058
     Dates: start: 20100728, end: 20100730

REACTIONS (2)
  - ANAPHYLACTIC REACTION [None]
  - HYPOAESTHESIA [None]
